FAERS Safety Report 8333879-1 (Version None)
Quarter: 2012Q2

REPORT INFORMATION
  Report Type: 
  Country: None (occurrence: None)
  Receive Date: 20120503
  Receipt Date: 20120424
  Transmission Date: 20120825
  Serious: Yes (Other)
  Sender: FDA-Public Use
  Company Number: BR-ASTRAZENECA-2012SE09640

PATIENT
  Age: 857 Month
  Sex: Female
  Weight: 80 kg

DRUGS (4)
  1. ATACAND HCT [Suspect]
     Indication: HYPERTENSION
     Dosage: 16+12.5 MG DAILY
     Route: 048
     Dates: start: 20120201
  2. CARVEDILOL [Concomitant]
     Route: 048
  3. ATACAND HCT [Suspect]
     Indication: HYPERTENSION
     Dosage: 16+5 MG DAILY
     Route: 048
     Dates: end: 20120201
  4. UNSPECIFIED [Concomitant]
     Indication: SYNCOPE
     Route: 048
     Dates: start: 20070101

REACTIONS (4)
  - DRUG INEFFECTIVE [None]
  - HYPERTENSION [None]
  - VARICOSE VEIN [None]
  - OEDEMA PERIPHERAL [None]
